FAERS Safety Report 5929557-6 (Version None)
Quarter: 2008Q3

REPORT INFORMATION
  Report Type: 
  Country: None (occurrence: None)
  Receive Date: 20080922
  Receipt Date: 20071020
  Transmission Date: 20090109
  Serious: No
  Sender: FDA-Public Use
  Company Number: T200701298

PATIENT
  Age: 46 Year
  Sex: Male
  Weight: 90.7 kg

DRUGS (2)
  1. HYDROCODONE BITARTRATE + ACETAMINOPHEN [Suspect]
     Indication: BACK INJURY
     Dosage: Q 6 HOURS
     Dates: start: 20070801
  2. HYDROCODONE BITARTRATE + ACETAMINOPHEN [Suspect]
     Indication: BACK PAIN
     Dosage: Q 6 HOURS
     Dates: start: 20070801

REACTIONS (2)
  - ABDOMINAL PAIN UPPER [None]
  - THROAT TIGHTNESS [None]
